FAERS Safety Report 8947678 (Version 1)
Quarter: 2012Q4

REPORT INFORMATION
  Report Type: 
  Country: US (occurrence: US)
  Receive Date: 20121205
  Receipt Date: 20121205
  Transmission Date: 20130627
  Serious: No
  Sender: FDA-Public Use
  Company Number: US-B.I. PHARMACEUTICALS,INC./RIDGEFIELD-2012-BI-02269BP

PATIENT
  Sex: Male

DRUGS (3)
  1. SPIRIVA [Suspect]
     Indication: EMPHYSEMA
     Dosage: 18 mcg
     Route: 055
     Dates: start: 2011
  2. XANAX [Concomitant]
     Indication: ANXIETY
     Route: 048
  3. CIMZIA [Concomitant]
     Indication: CROHN^S DISEASE
     Route: 058

REACTIONS (2)
  - Erectile dysfunction [Not Recovered/Not Resolved]
  - Palpitations [Recovered/Resolved]
